FAERS Safety Report 6022092-9 (Version None)
Quarter: 2008Q4

REPORT INFORMATION
  Report Type: 
  Country: None (occurrence: None)
  Receive Date: 20081223
  Receipt Date: 20081209
  Transmission Date: 20090506
  Serious: Yes (Hospitalization)
  Sender: FDA-Public Use
  Company Number: KV200801069

PATIENT
  Age: 42 Year
  Sex: Female

DRUGS (3)
  1. MORPHINE SULFATE [Suspect]
     Indication: CANCER PAIN
     Dosage: 15 MG, BID, ORAL
     Route: 048
  2. MORPHINE SULFATE [Suspect]
     Indication: CANCER PAIN
     Dosage: 30 MG,   ORAL
     Route: 048
     Dates: start: 20060101
  3. TRAZODONE HCL [Concomitant]

REACTIONS (4)
  - DIZZINESS [None]
  - LOSS OF CONSCIOUSNESS [None]
  - OVERDOSE [None]
  - PRODUCT QUALITY ISSUE [None]
